FAERS Safety Report 24096537 (Version 1)
Quarter: 2024Q3

REPORT INFORMATION
  Report Type: Spontaneous
  Country: US (occurrence: US)
  Receive Date: 20240716
  Receipt Date: 20240716
  Transmission Date: 20241016
  Serious: Yes (Life-Threatening, Hospitalization, Other)
  Sender: PFIZER
  Company Number: US-PFIZER INC-202400211188

PATIENT
  Age: 14 Year
  Sex: Male

DRUGS (6)
  1. VINCRISTINE SULFATE [Suspect]
     Active Substance: VINCRISTINE SULFATE
     Indication: B-cell type acute leukaemia
     Dosage: UNK, CYCLIC
  2. METHOTREXATE SODIUM [Suspect]
     Active Substance: METHOTREXATE SODIUM
     Indication: B-cell type acute leukaemia
     Dosage: UNK, CYCLIC, HIGH-DOSE (HD)
  3. METHOTREXATE SODIUM [Suspect]
     Active Substance: METHOTREXATE SODIUM
     Dosage: UNK, CYCLIC,DAY 15 HD-MTX (DOSE 2 OF 4)
  4. METHOTREXATE SODIUM [Suspect]
     Active Substance: METHOTREXATE SODIUM
     Dosage: ON DAY 43 FINAL DOSE
  5. MERCAPTOPURINE [Suspect]
     Active Substance: MERCAPTOPURINE
     Indication: B-cell type acute leukaemia
     Dosage: 60 MG/M2, CYCLIC, PER DAY ON DAYS 1 TO 14 AND 29 TO 42
  6. MERCAPTOPURINE [Suspect]
     Active Substance: MERCAPTOPURINE
     Dosage: 25 MG/M2, CYCLIC, PER DAY PER PROTOCOL

REACTIONS (1)
  - Venoocclusive liver disease [Recovering/Resolving]
